FAERS Safety Report 7378547-8 (Version None)
Quarter: 2011Q1

REPORT INFORMATION
  Report Type: 
  Country: None (occurrence: None)
  Receive Date: 20110328
  Receipt Date: 20110315
  Transmission Date: 20110831
  Serious: No
  Sender: FDA-Public Use
  Company Number: US-TYCO HEALTHCARE/MALLINCKRODT-T201100610

PATIENT
  Age: 25 Year
  Sex: Male

DRUGS (7)
  1. FLEXERIL [Concomitant]
  2. ASPIRIN [Concomitant]
  3. EXALGO [Suspect]
     Indication: PAIN
     Dosage: 12 MG, QD
     Route: 048
     Dates: start: 20110301
  4. OXYCONTIN [Concomitant]
  5. PROZAC                             /00724401/ [Concomitant]
  6. XANAX [Concomitant]
  7. NEURONTIN [Concomitant]

REACTIONS (1)
  - INTENTIONAL DRUG MISUSE [None]
